FAERS Safety Report 8059716-0 (Version None)
Quarter: 2012Q1

REPORT INFORMATION
  Report Type: 
  Country: None (occurrence: None)
  Receive Date: 20120120
  Receipt Date: 20120116
  Transmission Date: 20120608
  Serious: Yes (Death, Other)
  Sender: FDA-Public Use
  Company Number: PHHY2012FI003027

PATIENT
  Age: 88 Year
  Sex: Female

DRUGS (9)
  1. SIMVASTATIN [Concomitant]
     Dosage: 10 MG, ONCE A DAY
  2. ATRODUAL [Suspect]
     Dosage: OF 4-6 INHALATIONS PER DAY
     Dates: start: 20111230
  3. PANTOPRAZOLE [Concomitant]
     Dosage: 1 DF, ONE TABLET PER DAY
  4. ONBREZ [Suspect]
     Dosage: 150 UG, ONE CAPSULE PER DAY
     Dates: start: 20111202, end: 20111230
  5. MALTOFER [Concomitant]
  6. DURAGESIC-100 [Concomitant]
  7. FURESIS [Concomitant]
     Dosage: 1 DF, BID
  8. BISOPROLOL FUMARATE [Concomitant]
     Dosage: ) 2,5 MG WITH DOSE OF HALF TABLET PER DAY
  9. PRIMASPAN [Concomitant]
     Dosage: 1 DF, PER DAY

REACTIONS (7)
  - MYOCARDIAL INFARCTION [None]
  - TROPONIN T INCREASED [None]
  - ELECTROCARDIOGRAM ST SEGMENT ELEVATION [None]
  - ABDOMINAL PAIN [None]
  - CHEST PAIN [None]
  - DYSPNOEA [None]
  - GENERAL PHYSICAL HEALTH DETERIORATION [None]
